FAERS Safety Report 8811853 (Version 1)
Quarter: 2012Q4

REPORT INFORMATION
  Report Type: 
  Country: CN (occurrence: CN)
  Receive Date: 20120927
  Receipt Date: 20120927
  Transmission Date: 20130627
  Serious: Yes (Other)
  Sender: FDA-Public Use
  Company Number: CN-GLAXOSMITHKLINE-B0833344A

PATIENT
  Sex: Male
  Weight: 60 kg

DRUGS (1)
  1. SALMETEROL XINAFOATE + FLUTICASONE PROPIONATE [Suspect]
     Indication: ASTHMA
     Dosage: 50MCG Twice per day
     Route: 055
     Dates: start: 20110215, end: 20110715

REACTIONS (4)
  - Gastrointestinal candidiasis [Recovered/Resolved]
  - Oral mucosal erythema [Recovered/Resolved]
  - Oedema mouth [Recovered/Resolved]
  - Blood pressure [Recovered/Resolved]
